FAERS Safety Report 19607935 (Version 1)
Quarter: 2021Q3

REPORT INFORMATION
  Report Type: Spontaneous
  Country: US (occurrence: US)
  Receive Date: 20210726
  Receipt Date: 20210726
  Transmission Date: 20211014
  Serious: Yes (Other)
  Sender: FDA-Public Use
  Company Number: US-SA-2021SA240670

PATIENT
  Age: 43 Year
  Sex: Male

DRUGS (2)
  1. LEMTRADA [Suspect]
     Active Substance: ALEMTUZUMAB
     Dosage: 3 DOSES
     Dates: start: 201704
  2. LEMTRADA [Suspect]
     Active Substance: ALEMTUZUMAB
     Dosage: RECEIVED 5 DOSES 5/2016 AND 3 DOSES 4/2017
     Dates: start: 201605

REACTIONS (8)
  - Hyperthyroidism [Unknown]
  - Pancreatitis acute [Unknown]
  - Eyelid ptosis [Unknown]
  - Lipase increased [Unknown]
  - Night sweats [Unknown]
  - Basedow^s disease [Unknown]
  - Weight decreased [Unknown]
  - Tremor [Unknown]

NARRATIVE: CASE EVENT DATE: 202105
